FAERS Safety Report 4730112-4 (Version None)
Quarter: 2005Q3

REPORT INFORMATION
  Report Type: 
  Country: None (occurrence: None)
  Receive Date: 20050728
  Receipt Date: 20050728
  Transmission Date: 20060218
  Serious: Yes (Hospitalization)
  Sender: FDA-Public Use
  Company Number: None

PATIENT
  Age: 58 Year
  Sex: Female

DRUGS (2)
  1. SILDENAFIL [Suspect]
     Indication: CARDIAC FAILURE CONGESTIVE
     Dosage: 50 MG TID PO
     Route: 048
     Dates: start: 20050615
  2. PLACEBO [Suspect]

REACTIONS (3)
  - CARDIAC FAILURE [None]
  - TREATMENT NONCOMPLIANCE [None]
  - VENTRICULAR TACHYCARDIA [None]
